FAERS Safety Report 8339245-7 (Version None)
Quarter: 2012Q2

REPORT INFORMATION
  Report Type: 
  Country: None (occurrence: None)
  Receive Date: 20120507
  Receipt Date: 20120424
  Transmission Date: 20120825
  Serious: Yes (Other)
  Sender: FDA-Public Use
  Company Number: GB-JNJFOC-20120413810

PATIENT
  Age: 15 Year
  Sex: Female

DRUGS (1)
  1. RISPERDAL [Suspect]
     Indication: TOURETTE'S DISORDER
     Dosage: ONE TO TWO YEARS (AT THE TIME OF REPORT)
     Route: 048

REACTIONS (3)
  - QRS AXIS ABNORMAL [None]
  - ELECTROCARDIOGRAM QT PROLONGED [None]
  - BUNDLE BRANCH BLOCK RIGHT [None]
